FAERS Safety Report 8002420 (Version 7)
Quarter: 2014Q1

REPORT INFORMATION
  Report Type: Report from Study
  Country: DE (occurrence: DE)
  Receive Date: 20110622
  Receipt Date: 20140125
  Transmission Date: 20141002
  Serious: Yes (Hospitalization)
  Sender: FDA-Public Use
  Company Number: DE-UCBSA-019494

PATIENT
  Age: 60 Year
  Sex: Female

DRUGS (25)
  1. CIMZIA [Suspect]
     Indication: RHEUMATOID ARTHRITIS
     Route: 058
     Dates: start: 20100318, end: 20120703
  2. PREDNISOLONE [Concomitant]
     Indication: ARTHRALGIA
     Dates: start: 20111124
  3. PREDNISOLONE [Concomitant]
     Indication: RHEUMATOID ARTHRITIS
     Dates: start: 20111124
  4. PREDNISOLONE [Concomitant]
     Indication: ARTHRALGIA
     Dates: start: 20111024, end: 20111123
  5. PREDNISOLONE [Concomitant]
     Indication: RHEUMATOID ARTHRITIS
     Dates: start: 20111024, end: 20111123
  6. PREDNISOLONE [Concomitant]
     Indication: ARTHRALGIA
     Dates: start: 20110924, end: 20111023
  7. PREDNISOLONE [Concomitant]
     Indication: RHEUMATOID ARTHRITIS
     Dates: start: 20110924, end: 20111023
  8. PREDNISOLONE [Concomitant]
     Indication: ARTHRALGIA
     Dates: start: 20110824, end: 20110923
  9. PREDNISOLONE [Concomitant]
     Indication: RHEUMATOID ARTHRITIS
     Dates: start: 20110824, end: 20110923
  10. PREDNISOLONE [Concomitant]
     Indication: ARTHRALGIA
     Dates: start: 20110125, end: 2011
  11. PREDNISOLONE [Concomitant]
     Indication: RHEUMATOID ARTHRITIS
     Dates: start: 20110125, end: 2011
  12. PREDNISOLONE [Concomitant]
     Indication: ARTHRALGIA
     Dates: start: 20101005, end: 2011
  13. PREDNISOLONE [Concomitant]
     Indication: RHEUMATOID ARTHRITIS
     Dates: start: 20101005, end: 2011
  14. PREDNISOLONE [Concomitant]
     Indication: ARTHRALGIA
     Dates: start: 20050808, end: 20100923
  15. PREDNISOLONE [Concomitant]
     Indication: RHEUMATOID ARTHRITIS
     Dates: start: 20050808, end: 20100923
  16. PREDNISOLONE [Concomitant]
     Indication: ARTHRALGIA
     Dosage: IN THE MORNING
     Route: 048
  17. PREDNISOLONE [Concomitant]
     Indication: RHEUMATOID ARTHRITIS
     Dosage: IN THE MORNING
     Route: 048
  18. L-THYROXINE [Concomitant]
     Indication: THYROID DISORDER
     Dosage: IN THE MORNING
     Route: 048
     Dates: start: 199101
  19. PANTOZOL [Concomitant]
     Indication: GASTROOESOPHAGEAL REFLUX DISEASE
     Route: 048
     Dates: start: 20100910, end: 20100916
  20. PANTOZOL [Concomitant]
     Indication: GASTROENTERITIS
     Route: 048
     Dates: start: 20100910, end: 20100916
  21. PANTOZOL [Concomitant]
     Indication: GASTROOESOPHAGEAL REFLUX DISEASE
     Dates: start: 20110127
  22. PANTOZOL [Concomitant]
     Indication: GASTROENTERITIS
     Dates: start: 20110127
  23. QUENSYL [Concomitant]
     Indication: RHEUMATOID ARTHRITIS
     Route: 048
     Dates: start: 2006
  24. QUENSYL [Concomitant]
     Indication: RHEUMATOID ARTHRITIS
     Dosage: 200-400 MG
     Dates: start: 20070115, end: 20120330
  25. OMEP [Concomitant]
     Dosage: IN THE MORNING
     Route: 048
     Dates: start: 20100910

REACTIONS (2)
  - Gastroenteritis [Recovered/Resolved]
  - Anaemia [Recovered/Resolved]
